FAERS Safety Report 9154276 (Version 1)
Quarter: 2013Q1

REPORT INFORMATION
  Report Type: Spontaneous
  Country: AU (occurrence: AU)
  Receive Date: 20130311
  Receipt Date: 20130311
  Transmission Date: 20140127
  Serious: Yes (Hospitalization, Other)
  Sender: FDA-Public Use
  Company Number: AU-PFIZER INC-2013079664

PATIENT
  Sex: Female

DRUGS (1)
  1. CHAMPIX [Suspect]
     Indication: SMOKING CESSATION THERAPY
     Dosage: UNK

REACTIONS (10)
  - Spinal fracture [Unknown]
  - Accident [Unknown]
  - Hallucination [Unknown]
  - Dyspnoea [Unknown]
  - Nausea [Unknown]
  - Palpitations [Unknown]
  - Thinking abnormal [Unknown]
  - Depressed mood [Unknown]
  - Back pain [Unknown]
  - Activities of daily living impaired [Unknown]
